FAERS Safety Report 5661925-2 (Version None)
Quarter: 2008Q1

REPORT INFORMATION
  Report Type: 
  Country: None (occurrence: None)
  Receive Date: 20080312
  Receipt Date: 20080303
  Transmission Date: 20080703
  Serious: Yes (Other)
  Sender: FDA-Public Use
  Company Number: JP-BRISTOL-MYERS SQUIBB COMPANY-14108070

PATIENT
  Age: 41 Year
  Sex: Male
  Weight: 76 kg

DRUGS (3)
  1. ABILIFY [Suspect]
     Indication: SCHIZOPHRENIA
     Dosage: 9MG,BID:07NOV07-11NOV07;12MG,BID:12NOV07-16NOV07;15MG,BID:17NOV07-03DEC07;12MG,BID:04DEC07-07DEC07
     Route: 048
     Dates: start: 20071107, end: 20071207
  2. ZYPREXA [Concomitant]
     Dates: start: 20071102, end: 20071207
  3. FLUNITRAZEPAM [Concomitant]
     Dates: start: 20071102

REACTIONS (5)
  - AGGRESSION [None]
  - DELUSION [None]
  - HALLUCINATION, AUDITORY [None]
  - INSOMNIA [None]
  - MOROSE [None]
